FAERS Safety Report 5937795-1 (Version None)
Quarter: 2008Q4

REPORT INFORMATION
  Report Type: 
  Country: None (occurrence: None)
  Receive Date: 20081031
  Receipt Date: 20081020
  Transmission Date: 20090506
  Serious: Yes (Hospitalization)
  Sender: FDA-Public Use
  Company Number: FR-GILEAD-2008-0018730

PATIENT
  Sex: Female

DRUGS (4)
  1. VIREAD [Suspect]
     Indication: HIV INFECTION
     Route: 048
     Dates: start: 20040901
  2. COMBIVIR [Suspect]
     Indication: HIV INFECTION
     Route: 048
     Dates: start: 20040901
  3. ASPEGIC 325 [Concomitant]
     Indication: HEADACHE
     Dates: start: 20080928
  4. ATARAX [Concomitant]
     Dates: start: 20080928

REACTIONS (1)
  - CARDIOMYOPATHY [None]
